FAERS Safety Report 8397077 (Version 2)
Quarter: 2012Q4

REPORT INFORMATION
  Report Type: Report from Study
  Country: US (occurrence: US)
  Receive Date: 20120209
  Receipt Date: 20121002
  Transmission Date: 20130627
  Serious: Yes (Death, Hospitalization, Other)
  Sender: FDA-Public Use
  Company Number: US-BRISTOL-MYERS SQUIBB COMPANY-16209785

PATIENT
  Age: 63 Year
  Sex: Female

DRUGS (2)
  1. SPRYCEL [Suspect]
     Indication: CHRONIC MYELOID LEUKAEMIA
     Route: 048
  2. DEPOCYT [Suspect]
     Indication: ACUTE MYELOID LEUKAEMIA
     Dosage: 6Sep11,20Sep11
     Dates: start: 20110823, end: 20110920

REACTIONS (6)
  - Death [Fatal]
  - Malignant neoplasm progression [Unknown]
  - Nausea [Unknown]
  - Vomiting [Unknown]
  - Diarrhoea [Unknown]
  - Hepatic enzyme increased [Unknown]
